FAERS Safety Report 7797093-0 (Version None)
Quarter: 2011Q4

REPORT INFORMATION
  Report Type: 
  Country: None (occurrence: None)
  Receive Date: 20111005
  Receipt Date: 20110926
  Transmission Date: 20120403
  Serious: Yes (Hospitalization)
  Sender: FDA-Public Use
  Company Number: BR-SANOFI-AVENTIS-2011SA044346

PATIENT
  Age: 74 Year
  Sex: Male
  Weight: 69 kg

DRUGS (10)
  1. LASIX [Concomitant]
  2. WARFARIN SODIUM [Concomitant]
     Route: 065
  3. CARVEDILOL [Concomitant]
     Route: 065
  4. ALDACTONE [Concomitant]
  5. THIAZIDES [Concomitant]
     Route: 065
  6. SIMVASTATIN [Concomitant]
     Route: 065
  7. DIGOXIN [Concomitant]
  8. DRONEDARONE HCL [Suspect]
     Indication: ATRIAL FIBRILLATION
     Route: 048
     Dates: start: 20110304
  9. DOXAZOSIN MESYLATE [Concomitant]
     Route: 065
  10. ENALAPRIL MALEATE [Concomitant]

REACTIONS (1)
  - BRADYCARDIA [None]
